FAERS Safety Report 12235264 (Version 1)
Quarter: 2016Q2

REPORT INFORMATION
  Report Type: Spontaneous
  Country: US (occurrence: US)
  Receive Date: 20160404
  Receipt Date: 20160404
  Transmission Date: 20160815
  Serious: Yes (Other)
  Sender: FDA-Public Use
  Company Number: US-TARO-2015TAR01087

PATIENT
  Age: 57 Year
  Sex: Female
  Weight: 63.49 kg

DRUGS (1)
  1. FLUOROURACIL TOPICAL CREAM USP 5% [Suspect]
     Active Substance: FLUOROURACIL
     Indication: PRECANCEROUS CELLS PRESENT
     Dosage: A LITTLE LESS THAN A PENCIL ERASER SIZE, 1X/DAY
     Route: 061
     Dates: start: 20151113, end: 20151121

REACTIONS (7)
  - Dysgeusia [Recovered/Resolved]
  - Paraesthesia oral [Unknown]
  - Lip pain [Recovering/Resolving]
  - Drug administered at inappropriate site [Recovered/Resolved]
  - Nausea [Recovered/Resolved]
  - Lip blister [Recovered/Resolved]
  - Lip swelling [Recovered/Resolved]

NARRATIVE: CASE EVENT DATE: 20151113
